FAERS Safety Report 8307994-2 (Version None)
Quarter: 2012Q2

REPORT INFORMATION
  Report Type: 
  Country: None (occurrence: None)
  Receive Date: 20120420
  Receipt Date: 20120411
  Transmission Date: 20120825
  Serious: Yes (Hospitalization)
  Sender: FDA-Public Use
  Company Number: 132580

PATIENT
  Age: 8 Year
  Sex: Male

DRUGS (1)
  1. CEFTRIAXON [Suspect]
     Indication: PYREXIA
     Dosage: 1G IV
     Route: 042

REACTIONS (3)
  - DEHYDRATION [None]
  - TOXIC ENCEPHALOPATHY [None]
  - MYOCLONUS [None]
